FAERS Safety Report 7361695-6 (Version None)
Quarter: 2011Q1

REPORT INFORMATION
  Report Type: 
  Country: None (occurrence: None)
  Receive Date: 20110318
  Receipt Date: 20110308
  Transmission Date: 20110831
  Serious: Yes (Hospitalization)
  Sender: FDA-Public Use
  Company Number: US-JNJFOC-20090804150

PATIENT
  Sex: Female
  Weight: 53.1 kg

DRUGS (7)
  1. PREDNISONE [Concomitant]
     Indication: CROHN'S DISEASE
  2. BUDESONIDE [Concomitant]
     Indication: CROHN'S DISEASE
  3. MESALAMINE [Concomitant]
     Indication: CROHN'S DISEASE
  4. REMICADE [Suspect]
     Indication: CROHN'S DISEASE
     Route: 042
  5. REMICADE [Suspect]
     Dosage: TOTAL OF 8 INFUSIONS
     Route: 042
  6. MERCAPTOPURINE [Concomitant]
     Indication: CROHN'S DISEASE
  7. PROTONIX [Concomitant]

REACTIONS (1)
  - CROHN'S DISEASE [None]
